FAERS Safety Report 14419393 (Version 2)
Quarter: 2018Q1

REPORT INFORMATION
  Report Type: Spontaneous
  Country: SE (occurrence: SE)
  Receive Date: 20180122
  Receipt Date: 20180216
  Transmission Date: 20180509
  Serious: Yes (Other)
  Sender: FDA-Public Use
  Company Number: SE-PFIZER INC-2018027261

PATIENT
  Age: 88 Year
  Sex: Male

DRUGS (1)
  1. TERRA-CORTRIL POLYMYXIN B [Suspect]
     Active Substance: HYDROCORTISONE\OXYTETRACYCLINE HYDROCHLORIDE\POLYMYXIN B SULFATE
     Indication: OTITIS EXTERNA
     Dosage: 5 ML, 2X/DAY
     Route: 001
     Dates: start: 20180116, end: 20180123

REACTIONS (2)
  - Deafness [Recovered/Resolved]
  - Cough [Unknown]

NARRATIVE: CASE EVENT DATE: 20180116
